FAERS Safety Report 5198435-5 (Version None)
Quarter: 2006Q4

REPORT INFORMATION
  Report Type: 
  Country: None (occurrence: None)
  Receive Date: 20061228
  Receipt Date: 20061228
  Transmission Date: 20070319
  Serious: Yes (Hospitalization)
  Sender: FDA-Public Use
  Company Number: None

PATIENT
  Age: 60 Year
  Sex: Female
  Weight: 68.0396 kg

DRUGS (2)
  1. BUSPIRONE 10 MG BID       BRISTOL MYERS [Suspect]
     Dosage: 10MG BID PO
     Route: 048
     Dates: start: 20061109, end: 20061128
  2. PLACEBO [Suspect]

REACTIONS (7)
  - ARTHRALGIA [None]
  - CHEST DISCOMFORT [None]
  - CONDITION AGGRAVATED [None]
  - DYSPNOEA [None]
  - MYALGIA [None]
  - NAUSEA [None]
  - VOMITING [None]
